FAERS Safety Report 9353997 (Version 1)
Quarter: 2013Q2

REPORT INFORMATION
  Report Type: Spontaneous
  Country: FR (occurrence: FR)
  Receive Date: 20130618
  Receipt Date: 20130618
  Transmission Date: 20140414
  Serious: Yes (Hospitalization)
  Sender: FDA-Public Use
  Company Number: FR-PFIZER INC-2013176006

PATIENT
  Age: 63 Year
  Sex: Female

DRUGS (4)
  1. DALACINE [Suspect]
     Indication: ABSCESS
     Dosage: 600 MG, 3X/DAY
     Route: 048
     Dates: start: 20130227, end: 20130308
  2. BACTRIM [Suspect]
     Indication: ABSCESS
     Dosage: 1 DF, 4X/DAY
     Route: 048
     Dates: start: 20130227, end: 20130308
  3. INEXIUM [Concomitant]
     Dosage: 40 MG, UNK
  4. DOLIPRANE [Concomitant]
     Dosage: 1 G, UNK

REACTIONS (3)
  - Rash papular [Recovered/Resolved]
  - Pruritus [Recovered/Resolved]
  - Pyrexia [Recovered/Resolved]
